FAERS Safety Report 24208001 (Version 2)
Quarter: 2024Q3

REPORT INFORMATION
  Report Type: Spontaneous
  Country: US (occurrence: US)
  Receive Date: 20240814
  Receipt Date: 20240829
  Transmission Date: 20241017
  Serious: No
  Sender: CALLIDITAS THERAPEUTICS
  Company Number: US-Calliditas-2024CAL01451

PATIENT
  Age: 43 Year
  Sex: Female
  Weight: 58 kg

DRUGS (1)
  1. TARPEYO [Suspect]
     Active Substance: BUDESONIDE
     Indication: IgA nephropathy
     Route: 048
     Dates: start: 20240726

REACTIONS (5)
  - Dizziness [Unknown]
  - Headache [Not Recovered/Not Resolved]
  - Fatigue [Unknown]
  - Muscular weakness [Unknown]
  - Blood pressure increased [Unknown]
